FAERS Safety Report 7338386-0 (Version None)
Quarter: 2011Q1

REPORT INFORMATION
  Report Type: 
  Country: None (occurrence: None)
  Receive Date: 20110224
  Receipt Date: 20100928
  Transmission Date: 20110831
  Serious: Yes (Congenital Anomaly)
  Sender: FDA-Public Use
  Company Number: AUR-APL-2010-02405

PATIENT

DRUGS (2)
  1. SERTRALINE HYDROCHLORIDE [Suspect]
     Indication: PSYCHOTIC DISORDER
     Dosage: 50MG, TID, TRANSPLACENTAL
     Route: 064
  2. FERROUS FUMARATE [Concomitant]

REACTIONS (2)
  - MATERNAL DRUGS AFFECTING FOETUS [None]
  - CONGENITAL HYPOTHYROIDISM [None]
